FAERS Safety Report 11761629 (Version 4)
Quarter: 2016Q2

REPORT INFORMATION
  Report Type: Spontaneous
  Country: US (occurrence: US)
  Receive Date: 20151120
  Receipt Date: 20160517
  Transmission Date: 20160815
  Serious: Yes (Hospitalization, Other)
  Sender: FDA-Public Use
  Company Number: US-ELI_LILLY_AND_COMPANY-US201511005658

PATIENT
  Age: 53 Year
  Sex: Male

DRUGS (2)
  1. PHENTOLAMINE [Concomitant]
     Active Substance: PHENTOLAMINE
     Indication: BLOOD PRESSURE MEASUREMENT
     Dosage: UNK
     Dates: start: 2012
  2. AXIRON [Suspect]
     Active Substance: TESTOSTERONE
     Indication: ERECTILE DYSFUNCTION
     Dosage: UNK, UNKNOWN
     Route: 065
     Dates: start: 2010

REACTIONS (5)
  - Appendicitis [Unknown]
  - Intestinal obstruction [Unknown]
  - Intestinal ischaemia [Unknown]
  - Thrombosis [Unknown]
  - Short-bowel syndrome [Unknown]

NARRATIVE: CASE EVENT DATE: 201406
